FAERS Safety Report 13702314 (Version 1)
Quarter: 2017Q2

REPORT INFORMATION
  Report Type: Spontaneous
  Country: US (occurrence: US)
  Receive Date: 20170629
  Receipt Date: 20170629
  Transmission Date: 20170830
  Serious: No
  Sender: FDA-Public Use
  Company Number: US-GLAXOSMITHKLINE-US2017GSK100021

PATIENT

DRUGS (2)
  1. FLOVENT [Suspect]
     Active Substance: FLUTICASONE PROPIONATE
     Indication: ASTHMA
  2. ALBUTEROL. [Suspect]
     Active Substance: ALBUTEROL
     Indication: ASTHMA

REACTIONS (1)
  - Intentional product misuse [Unknown]
